FAERS Safety Report 19628639 (Version 1)
Quarter: 2021Q3

REPORT INFORMATION
  Report Type: Spontaneous
  Country: CA (occurrence: CA)
  Receive Date: 20210729
  Receipt Date: 20210729
  Transmission Date: 20211014
  Serious: Yes (Other)
  Sender: FDA-Public Use
  Company Number: CA-IGSA-BIG0013598

PATIENT
  Age: 7 Year
  Sex: Male
  Weight: 24 kg

DRUGS (5)
  1. IGIVNEX [Suspect]
     Active Substance: HUMAN IMMUNOGLOBULIN G
     Indication: KAWASAKI^S DISEASE
     Dosage: 1 GRAM PER KILOGRAM
  2. GAMUNEX [Suspect]
     Active Substance: HUMAN IMMUNOGLOBULIN G
     Indication: KAWASAKI^S DISEASE
     Dosage: 1 GRAM PER KILOGRAM
     Route: 042
  3. PRIVIGEN [Suspect]
     Active Substance: HUMAN IMMUNOGLOBULIN G
     Indication: KAWASAKI^S DISEASE
     Dosage: 50 GRAM, QD
     Route: 042
  4. GAMUNEX [Suspect]
     Active Substance: HUMAN IMMUNOGLOBULIN G
     Dosage: 30 GRAM, QD
     Route: 042
  5. GAMUNEX [Suspect]
     Active Substance: HUMAN IMMUNOGLOBULIN G
     Dosage: 24 MILLIGRAM, QD
     Route: 042

REACTIONS (6)
  - Anaemia [Unknown]
  - Dizziness [Unknown]
  - Fatigue [Unknown]
  - Haemolysis [Unknown]
  - Coombs positive haemolytic anaemia [Unknown]
  - Low density lipoprotein increased [Unknown]
